FAERS Safety Report 15782466 (Version 1)
Quarter: 2019Q1

REPORT INFORMATION
  Report Type: Spontaneous
  Country: US (occurrence: US)
  Receive Date: 20190102
  Receipt Date: 20190102
  Transmission Date: 20190417
  Serious: Yes (Other)
  Sender: FDA-Public Use
  Company Number: US-SA-2018SA394756

PATIENT
  Sex: Male

DRUGS (1)
  1. LANTUS [Suspect]
     Active Substance: INSULIN GLARGINE
     Dosage: UNK, UNK
     Route: 065

REACTIONS (7)
  - Blood glucose increased [Unknown]
  - Diabetic neuropathy [Unknown]
  - Hypoaesthesia [Unknown]
  - Vision blurred [Unknown]
  - Glaucoma [Unknown]
  - Diabetic retinal oedema [Unknown]
  - Diabetic retinopathy [Unknown]
